FAERS Safety Report 10626772 (Version 3)
Quarter: 2015Q1

REPORT INFORMATION
  Report Type: Report from Study
  Country: BR (occurrence: BR)
  Receive Date: 20141204
  Receipt Date: 20150128
  Transmission Date: 20150720
  Serious: Yes (Other)
  Sender: FDA-Public Use
  Company Number: BR-ABBVIE-14P-020-1315769-00

PATIENT
  Age: 15 Year
  Sex: Male
  Weight: 52 kg

DRUGS (4)
  1. DEPAKOTE ER [Suspect]
     Active Substance: DIVALPROEX SODIUM
     Dosage: 1000 MG; 2 TABLETS AT NIGHT
     Route: 048
  2. DEPAKENE [Suspect]
     Active Substance: VALPROIC ACID
     Indication: PRODUCT USED FOR UNKNOWN INDICATION
     Route: 048
  3. FRISIUM [Concomitant]
     Active Substance: CLOBAZAM
     Indication: SEIZURE
     Route: 048
     Dates: start: 201401
  4. DEPAKOTE ER [Suspect]
     Active Substance: DIVALPROEX SODIUM
     Indication: SEIZURE
     Dosage: 1000 MG; IN THE MORNING AND AT NIGHT
     Route: 048
     Dates: start: 20140101

REACTIONS (8)
  - Fall [Unknown]
  - Blood pressure increased [Unknown]
  - Seizure [Recovered/Resolved]
  - Agitation [Unknown]
  - Muscle spasms [Not Recovered/Not Resolved]
  - Toothache [Unknown]
  - Alopecia [Not Recovered/Not Resolved]
  - Disturbance in attention [Not Recovered/Not Resolved]

NARRATIVE: CASE EVENT DATE: 20130101
